FAERS Safety Report 24377482 (Version 3)
Quarter: 2024Q4

REPORT INFORMATION
  Report Type: Report from Study
  Country: JP (occurrence: JP)
  Receive Date: 20240930
  Receipt Date: 20241026
  Transmission Date: 20250114
  Serious: Yes (Other)
  Sender: BOEHRINGER INGELHEIM
  Company Number: JP-CMIC11990402-23001007

PATIENT
  Age: 91 Year
  Sex: Male
  Weight: 51.3 kg

DRUGS (3)
  1. OFEV [Suspect]
     Active Substance: NINTEDANIB
     Indication: Interstitial lung disease
     Dates: start: 20220803, end: 20231229
  2. OFEV [Suspect]
     Active Substance: NINTEDANIB
     Indication: Rheumatoid arthritis
  3. PREDONINE [Concomitant]
     Active Substance: PREDNISOLONE
     Indication: Interstitial lung disease

REACTIONS (1)
  - Diverticulum intestinal haemorrhagic [Unknown]

NARRATIVE: CASE EVENT DATE: 20240116
